FAERS Safety Report 6338792-7 (Version None)
Quarter: 2009Q3

REPORT INFORMATION
  Report Type: 
  Country: None (occurrence: None)
  Receive Date: 20090903
  Receipt Date: 20090831
  Transmission Date: 20100115
  Serious: Yes (Other)
  Sender: FDA-Public Use
  Company Number: US-JNJFOC-20090607589

PATIENT
  Sex: Female
  Weight: 109.77 kg

DRUGS (8)
  1. TOPAMAX [Suspect]
     Route: 048
  2. TOPAMAX [Suspect]
     Indication: MIGRAINE PROPHYLAXIS
     Route: 048
  3. TOPIRAMATE [Suspect]
     Indication: MIGRAINE PROPHYLAXIS
     Route: 048
  4. ORACEA [Concomitant]
     Indication: SKIN DISORDER
     Route: 065
  5. MOTRIN [Concomitant]
     Indication: HEADACHE
  6. MULTIPLE VITAMINS [Concomitant]
     Indication: MEDICAL DIET
  7. HYDROCORTISONE [Concomitant]
     Indication: DIURETIC THERAPY
  8. BUTALBITAL [Concomitant]
     Indication: HEADACHE
     Route: 048

REACTIONS (6)
  - DRUG INEFFECTIVE [None]
  - HYPERTENSION [None]
  - MIGRAINE [None]
  - PRESYNCOPE [None]
  - TEARFULNESS [None]
  - THERAPY CESSATION [None]
